FAERS Safety Report 6585139-7 (Version None)
Quarter: 2010Q1

REPORT INFORMATION
  Report Type: 
  Country: None (occurrence: None)
  Receive Date: 20100217
  Receipt Date: 20100210
  Transmission Date: 20100710
  Serious: Yes (Hospitalization)
  Sender: FDA-Public Use
  Company Number: US-BAXTER-2009BH017005

PATIENT
  Age: 47 Year
  Sex: Male
  Weight: 102 kg

DRUGS (42)
  1. HEPARIN SODIUM INJECTION [Suspect]
     Indication: HAEMODIALYSIS
     Route: 042
     Dates: start: 20071101, end: 20080201
  2. HEPARIN SODIUM INJECTION [Suspect]
     Route: 042
     Dates: start: 20071114
  3. HEPARIN SODIUM INJECTION [Suspect]
     Route: 042
     Dates: start: 20071116
  4. HEPARIN SODIUM INJECTION [Suspect]
     Route: 042
     Dates: start: 20071126
  5. HEPARIN SODIUM INJECTION [Suspect]
     Route: 042
     Dates: start: 20071128
  6. HEPARIN SODIUM INJECTION [Suspect]
     Route: 042
     Dates: start: 20071130
  7. HEPARIN SODIUM INJECTION [Suspect]
     Route: 042
     Dates: start: 20071207
  8. HEPARIN SODIUM INJECTION [Suspect]
     Route: 042
     Dates: start: 20071212
  9. HEPARIN SODIUM INJECTION [Suspect]
     Route: 042
     Dates: start: 20071214
  10. HEPARIN SODIUM INJECTION [Suspect]
     Route: 042
     Dates: start: 20071217
  11. HEPARIN SODIUM INJECTION [Suspect]
     Route: 042
     Dates: start: 20071219
  12. HEPARIN SODIUM INJECTION [Suspect]
     Route: 042
     Dates: start: 20071221
  13. HEPARIN SODIUM INJECTION [Suspect]
     Route: 042
     Dates: start: 20071224
  14. HEPARIN SODIUM INJECTION [Suspect]
     Route: 042
     Dates: start: 20071228
  15. HEPARIN SODIUM INJECTION [Suspect]
     Route: 042
     Dates: start: 20071229
  16. HEPARIN SODIUM INJECTION [Suspect]
     Route: 042
     Dates: start: 20071231
  17. HEPARIN SODIUM INJECTION [Suspect]
     Route: 042
     Dates: start: 20080104
  18. HEPARIN SODIUM INJECTION [Suspect]
     Route: 042
     Dates: start: 20080107
  19. HEPARIN SODIUM INJECTION [Suspect]
     Route: 042
     Dates: start: 20080109
  20. HEPARIN SODIUM INJECTION [Suspect]
     Route: 042
     Dates: start: 20080111
  21. HEPARIN SODIUM INJECTION [Suspect]
     Route: 042
     Dates: start: 20080116
  22. HEPARIN SODIUM INJECTION [Suspect]
     Route: 042
     Dates: start: 20080118
  23. HEPARIN SODIUM INJECTION [Suspect]
     Route: 042
     Dates: start: 20080121
  24. HEPARIN SODIUM INJECTION [Suspect]
     Route: 042
     Dates: start: 20080123
  25. HEPARIN SODIUM INJECTION [Suspect]
     Route: 042
     Dates: start: 20080125
  26. HEPARIN SODIUM INJECTION [Suspect]
     Route: 042
     Dates: start: 20080128
  27. HEPARIN SODIUM INJECTION [Suspect]
     Route: 042
     Dates: start: 20080130
  28. HEPARIN SODIUM INJECTION [Suspect]
     Route: 042
     Dates: start: 20080201
  29. EPOGEN [Concomitant]
     Indication: DRUG USE FOR UNKNOWN INDICATION
     Route: 010
  30. NEPHROCAPS [Concomitant]
     Indication: DRUG USE FOR UNKNOWN INDICATION
     Route: 065
  31. VENOFER [Concomitant]
     Indication: DRUG USE FOR UNKNOWN INDICATION
     Route: 010
  32. IRON [Concomitant]
     Indication: DRUG USE FOR UNKNOWN INDICATION
     Route: 065
  33. ALBUTEROL [Concomitant]
     Indication: DRUG USE FOR UNKNOWN INDICATION
     Route: 055
  34. AMLODIPINE [Concomitant]
     Indication: DRUG USE FOR UNKNOWN INDICATION
  35. OSCAL [Concomitant]
     Indication: DRUG USE FOR UNKNOWN INDICATION
  36. TEGRETOL [Concomitant]
     Indication: DRUG USE FOR UNKNOWN INDICATION
  37. DOXAZOSIN MESYLATE [Concomitant]
     Indication: DRUG USE FOR UNKNOWN INDICATION
  38. HYDROCODONE [Concomitant]
     Indication: DRUG USE FOR UNKNOWN INDICATION
  39. METOPROLOL TARTRATE [Concomitant]
     Indication: DRUG USE FOR UNKNOWN INDICATION
  40. MIRALAX [Concomitant]
     Indication: DRUG USE FOR UNKNOWN INDICATION
  41. ZANTAC [Concomitant]
     Indication: DRUG USE FOR UNKNOWN INDICATION
  42. ZEMPLAR [Concomitant]
     Indication: DRUG USE FOR UNKNOWN INDICATION
     Route: 010

REACTIONS (11)
  - COAGULOPATHY [None]
  - DECREASED APPETITE [None]
  - DIARRHOEA [None]
  - FATIGUE [None]
  - HAEMATURIA [None]
  - HYPOTENSION [None]
  - MUSCLE SPASMS [None]
  - NAUSEA [None]
  - PRURITUS [None]
  - VOMITING [None]
  - WEIGHT DECREASED [None]
